FAERS Safety Report 24113620 (Version 1)
Quarter: 2024Q3

REPORT INFORMATION
  Report Type: Report from Study
  Country: AR (occurrence: AR)
  Receive Date: 20240720
  Receipt Date: 20240720
  Transmission Date: 20241016
  Serious: Yes (Hospitalization, Other)
  Sender: JOHNSON AND JOHNSON
  Company Number: AR-JNJFOC-20240448152

PATIENT
  Age: 59 Year
  Sex: Female
  Weight: 78 kg

DRUGS (1)
  1. SIMPONI [Suspect]
     Active Substance: GOLIMUMAB
     Indication: Rheumatoid arthritis
     Route: 058
     Dates: start: 20221215

REACTIONS (5)
  - Drug-induced liver injury [Not Recovered/Not Resolved]
  - Hepatic lesion [Not Recovered/Not Resolved]
  - Bacteraemia [Unknown]
  - Dehydration [Unknown]
  - Pain [Unknown]

NARRATIVE: CASE EVENT DATE: 20231101
